FAERS Safety Report 7464097-7 (Version None)
Quarter: 2011Q2

REPORT INFORMATION
  Report Type: 
  Country: None (occurrence: None)
  Receive Date: 20110506
  Receipt Date: 20110427
  Transmission Date: 20111010
  Serious: Yes (Hospitalization)
  Sender: FDA-Public Use
  Company Number: MX-ASTRAZENECA-2011SE19331

PATIENT
  Age: 58 Year
  Sex: Female

DRUGS (5)
  1. METFORMIN [Concomitant]
     Indication: DIABETES MELLITUS
     Route: 048
  2. GLYBURIDE [Concomitant]
     Indication: DIABETES MELLITUS
     Route: 048
  3. OMEPRAZOLE [Concomitant]
     Dates: start: 20110301
  4. CRESTOR [Suspect]
     Route: 048
  5. CIPROFLOZACINO [Concomitant]
     Dates: start: 20110401

REACTIONS (2)
  - DERMATOMYOSITIS [None]
  - DRUG HYPERSENSITIVITY [None]
